FAERS Safety Report 9788219 (Version 1)
Quarter: 2013Q4

REPORT INFORMATION
  Report Type: Report from Study
  Country: IT (occurrence: IT)
  Receive Date: 20131230
  Receipt Date: 20131230
  Transmission Date: 20140711
  Serious: Yes (Death)
  Sender: FDA-Public Use
  Company Number: IT-SA-2013SA135524

PATIENT
  Sex: 0

DRUGS (2)
  1. CLOFARABINE [Suspect]
     Indication: ACUTE MYELOID LEUKAEMIA RECURRENT
     Dosage: 30 MG/MQ ON DAY 1-5
     Route: 065
  2. CYTARABINE [Suspect]
     Indication: ACUTE MYELOID LEUKAEMIA RECURRENT
     Dosage: 1000MG/MQ GG ON DAY 1-5
     Route: 065

REACTIONS (1)
  - Death [Fatal]
